FAERS Safety Report 7966068-0 (Version None)
Quarter: 2011Q4

REPORT INFORMATION
  Report Type: 
  Country: None (occurrence: None)
  Receive Date: 20111208
  Receipt Date: 20111201
  Transmission Date: 20120403
  Serious: Yes (Hospitalization, Other)
  Sender: FDA-Public Use
  Company Number: US-ABBOTT-11P-163-0880189-00

PATIENT
  Sex: Male
  Weight: 92.616 kg

DRUGS (4)
  1. MIDODRINE HYDROCHLORIDE [Concomitant]
     Indication: AUTONOMIC FAILURE SYNDROME
     Dates: start: 20111128
  2. CAFERGOT [Concomitant]
     Indication: AUTONOMIC FAILURE SYNDROME
  3. MIDODRINE HYDROCHLORIDE [Concomitant]
     Dates: end: 20111128
  4. LUPRON DEPOT [Suspect]
     Indication: PROSTATE CANCER
     Dates: start: 20111106

REACTIONS (4)
  - SYNCOPE [None]
  - HYPOTENSION [None]
  - DEHYDRATION [None]
  - DYSKINESIA [None]
